FAERS Safety Report 9606008 (Version 1)
Quarter: 2013Q4

REPORT INFORMATION
  Report Type: Spontaneous
  Country: US (occurrence: US)
  Receive Date: 20131008
  Receipt Date: 20131008
  Transmission Date: 20140711
  Serious: Yes (Other)
  Sender: FDA-Public Use
  Company Number: PHHY2013US110147

PATIENT
  Age: 1 Week
  Sex: Male

DRUGS (2)
  1. DIGOXIN [Suspect]
     Indication: TACHYCARDIA FOETAL
     Dosage: 500 UG, UNK
     Route: 064
  2. DIGOXIN [Suspect]
     Dosage: 250 UG, (EVERY 6 HOURS.)
     Route: 064

REACTIONS (7)
  - Tachycardia foetal [Recovered/Resolved]
  - Hydrops foetalis [Recovered/Resolved]
  - Pericardial effusion [Recovered/Resolved]
  - Pleural effusion [Unknown]
  - Ascites [Unknown]
  - Skin oedema [Unknown]
  - Foetal exposure during pregnancy [Unknown]
